FAERS Safety Report 11908707 (Version 2)
Quarter: 2016Q2

REPORT INFORMATION
  Report Type: Spontaneous
  Country: US (occurrence: US)
  Receive Date: 20160111
  Receipt Date: 20160513
  Transmission Date: 20160815
  Serious: No
  Sender: FDA-Public Use
  Company Number: US-GLAXOSMITHKLINE-US2016002563

PATIENT
  Sex: Female

DRUGS (2)
  1. BACTROBAN [Suspect]
     Active Substance: MUPIROCIN\MUPIROCIN CALCIUM
     Indication: PRODUCT USED FOR UNKNOWN INDICATION
  2. MUPIROCINE CREAM [Suspect]
     Active Substance: MUPIROCIN
     Indication: STAPHYLOCOCCAL INFECTION
     Route: 061
     Dates: start: 2005

REACTIONS (3)
  - Nausea [Recovered/Resolved]
  - Vomiting [Recovered/Resolved]
  - Puncture site infection [Unknown]

NARRATIVE: CASE EVENT DATE: 2005
